FAERS Safety Report 18525041 (Version 1)
Quarter: 2020Q4

REPORT INFORMATION
  Report Type: Spontaneous
  Country: JP (occurrence: JP)
  Receive Date: 20201119
  Receipt Date: 20201119
  Transmission Date: 20210114
  Serious: Yes (Other)
  Sender: FDA-Public Use
  Company Number: JP-PURDUE-USA-2020-0178165

PATIENT
  Age: 79 Year
  Sex: Female

DRUGS (5)
  1. NORSPAN [Suspect]
     Active Substance: BUPRENORPHINE
     Dosage: 5 MCG, Q1H
     Route: 062
  2. OPALMON [Concomitant]
     Active Substance: LIMAPROST
     Indication: LUMBAR SPINAL STENOSIS
     Dosage: 3 DF, DAILY
     Route: 048
  3. NORSPAN [Suspect]
     Active Substance: BUPRENORPHINE
     Dosage: 10 MCG, Q1H
     Route: 062
  4. NORSPAN [Suspect]
     Active Substance: BUPRENORPHINE
     Indication: LUMBAR SPINAL STENOSIS
     Dosage: 5 MCG, Q1H
     Route: 062
  5. CELECOX [Concomitant]
     Active Substance: CELECOXIB
     Indication: LUMBAR SPINAL STENOSIS
     Dosage: 2 DF, DAILY
     Route: 048

REACTIONS (6)
  - Stress [Unknown]
  - Pain in extremity [Unknown]
  - Somnolence [Unknown]
  - Femoral neck fracture [Recovering/Resolving]
  - Gait disturbance [Unknown]
  - Arthralgia [Unknown]
